FAERS Safety Report 4597280-9 (Version None)
Quarter: 2005Q1

REPORT INFORMATION
  Report Type: 
  Country: None (occurrence: None)
  Receive Date: 20050225
  Receipt Date: 20050225
  Transmission Date: 20050727
  Serious: Yes (Hospitalization)
  Sender: FDA-Public Use
  Company Number: None

PATIENT
  Age: 56 Year
  Sex: Female
  Weight: 79.3795 kg

DRUGS (6)
  1. AVELOX [Suspect]
     Indication: SINUSITIS
     Dosage: ONE DAILY ORAL
     Route: 048
     Dates: start: 20050204, end: 20050204
  2. EFFEXOR [Concomitant]
  3. ESTROGEN [Concomitant]
  4. NASACORT [Concomitant]
  5. ZYRTEC [Concomitant]
  6. LIPITOR [Concomitant]

REACTIONS (3)
  - FAECAL INCONTINENCE [None]
  - LOSS OF CONSCIOUSNESS [None]
  - VOMITING [None]
